FAERS Safety Report 24721651 (Version 3)
Quarter: 2025Q1

REPORT INFORMATION
  Report Type: Spontaneous
  Country: ES (occurrence: ES)
  Receive Date: 20241211
  Receipt Date: 20250228
  Transmission Date: 20250408
  Serious: Yes (Other)
  Sender: Kenvue
  Company Number: None

PATIENT

DRUGS (4)
  1. LOPERAMIDE HYDROCHLORIDE [Suspect]
     Active Substance: LOPERAMIDE HYDROCHLORIDE
     Indication: Diarrhoea
     Route: 065
  2. ABEMACICLIB [Suspect]
     Active Substance: ABEMACICLIB
     Indication: Breast cancer metastatic
     Route: 048
     Dates: start: 202404
  3. ABEMACICLIB [Suspect]
     Active Substance: ABEMACICLIB
     Indication: Breast cancer
     Route: 048
  4. LETROZOLE [Concomitant]
     Active Substance: LETROZOLE
     Indication: Breast cancer
     Route: 065

REACTIONS (24)
  - Hernia [Recovering/Resolving]
  - Diarrhoea [Recovering/Resolving]
  - Asthenia [Recovering/Resolving]
  - Decreased immune responsiveness [Recovering/Resolving]
  - Blood test abnormal [Recovering/Resolving]
  - Oral pain [Recovering/Resolving]
  - Bone pain [Recovering/Resolving]
  - Menopausal disorder [Recovering/Resolving]
  - Cough [Recovering/Resolving]
  - Pyrexia [Recovering/Resolving]
  - Nasopharyngitis [Recovering/Resolving]
  - Pain [Recovering/Resolving]
  - Adnexa uteri pain [Recovering/Resolving]
  - Ovarian enlargement [Recovering/Resolving]
  - Breast pain [Recovering/Resolving]
  - Onychoclasis [Recovering/Resolving]
  - Nail bed bleeding [Recovering/Resolving]
  - Alopecia [Recovering/Resolving]
  - Abdominal distension [Recovering/Resolving]
  - Abdominal discomfort [Recovering/Resolving]
  - Vomiting [Recovered/Resolved]
  - Fatigue [Recovering/Resolving]
  - Dizziness [Recovering/Resolving]
  - Abdominal pain [Recovering/Resolving]

NARRATIVE: CASE EVENT DATE: 20240712
